FAERS Safety Report 5496632-2 (Version None)
Quarter: 2007Q4

REPORT INFORMATION
  Report Type: 
  Country: None (occurrence: None)
  Receive Date: 20071025
  Receipt Date: 20070627
  Transmission Date: 20080405
  Serious: No
  Sender: FDA-Public Use
  Company Number: A0660320A

PATIENT
  Age: 39 Year
  Sex: Female

DRUGS (11)
  1. ADVAIR DISKUS 100/50 [Suspect]
     Dosage: 1PUFF TWICE PER DAY
     Route: 055
     Dates: start: 20070301
  2. SINGULAIR [Concomitant]
  3. ZYRTEC [Concomitant]
  4. NASACORT [Concomitant]
  5. VESICARE [Concomitant]
  6. DEPAKOTE [Concomitant]
  7. PROVENTIL [Concomitant]
  8. BENZONATATE [Concomitant]
  9. RISPERDAL [Concomitant]
  10. MAXALT [Concomitant]
  11. NUVARING [Concomitant]

REACTIONS (2)
  - DRUG INEFFECTIVE [None]
  - PHARMACEUTICAL PRODUCT COMPLAINT [None]
